FAERS Safety Report 10244765 (Version 2)
Quarter: 2014Q2

REPORT INFORMATION
  Report Type: Report from Study
  Country: DE (occurrence: DE)
  Receive Date: 20140618
  Receipt Date: 20140618
  Transmission Date: 20141212
  Serious: Yes (Congenital Anomaly, Other)
  Sender: FDA-Public Use
  Company Number: DE-ABBVIE-10P-062-0679606-00

PATIENT
  Sex: Female
  Weight: 6.76 kg

DRUGS (4)
  1. NORVIR [Suspect]
     Indication: MATERNAL EXPOSURE TIMING UNSPECIFIED
     Route: 064
  2. ATAZANAVIR SULFATE [Suspect]
     Indication: MATERNAL EXPOSURE TIMING UNSPECIFIED
     Route: 064
  3. TRUVADA [Suspect]
     Indication: MATERNAL EXPOSURE TIMING UNSPECIFIED
     Route: 064
  4. SUSTIVA [Suspect]
     Indication: MATERNAL EXPOSURE TIMING UNSPECIFIED
     Route: 064

REACTIONS (13)
  - Intestinal perforation [Unknown]
  - Retinopathy of prematurity [Unknown]
  - Intraventricular haemorrhage [Unknown]
  - Hydrocephalus [Unknown]
  - Cerebral palsy [Unknown]
  - Acute respiratory distress syndrome [Unknown]
  - Foetal exposure during pregnancy [Unknown]
  - Patent ductus arteriosus [Unknown]
  - Peritonitis [Unknown]
  - Microcephaly [Unknown]
  - Strabismus [Unknown]
  - Bronchopulmonary dysplasia [Unknown]
  - Premature baby [Unknown]
